FAERS Safety Report 25943020 (Version 1)
Quarter: 2025Q4

REPORT INFORMATION
  Report Type: Spontaneous
  Country: US (occurrence: None)
  Receive Date: 20251020
  Receipt Date: 20251020
  Transmission Date: 20260118
  Serious: Yes (Hospitalization)
  Sender: FDA-CTU
  Company Number: None

PATIENT
  Age: 35 Year
  Sex: Female

DRUGS (1)
  1. COSENTYX [Suspect]
     Active Substance: SECUKINUMAB
     Indication: Hidradenitis
     Dosage: OTHER FREQUENCY : EVERY 4 WEEKS AS DIRECTED;?
     Route: 058

REACTIONS (4)
  - Exposure during pregnancy [None]
  - Maternal drugs affecting foetus [None]
  - Hospitalisation [None]
  - Pregnancy [None]

NARRATIVE: CASE EVENT DATE: 20250926
